FAERS Safety Report 4491529-9 (Version None)
Quarter: 2004Q4

REPORT INFORMATION
  Report Type: 
  Country: None (occurrence: None)
  Receive Date: 20041101
  Receipt Date: 20041018
  Transmission Date: 20050328
  Serious: Yes (Hospitalization, Other)
  Sender: FDA-Public Use
  Company Number: 2003118110

PATIENT
  Age: 58 Year
  Sex: Male
  Weight: 67.3 kg

DRUGS (8)
  1. ZITHROMAX [Suspect]
     Indication: PYREXIA
     Dosage: 500 MG (DAILY), ORAL
     Route: 048
     Dates: start: 20031028, end: 20031029
  2. NIFEDIPINE [Suspect]
     Indication: HYPERTENSION
     Dosage: 40 MG (DAILY), ORAL
     Route: 048
     Dates: end: 20031029
  3. LANSOPRAZOLE [Suspect]
     Indication: GASTRITIS HAEMORRHAGIC
     Dosage: 30 MG (DAILY), ORAL
     Route: 048
     Dates: start: 20031028, end: 20031029
  4. TOCOPHERYL NICOTINATE (TOCOPHERYL NICOTINATE) [Suspect]
     Indication: ILL-DEFINED DISORDER
     Dosage: 200 MG (BID), ORAL
     Route: 048
     Dates: end: 20031029
  5. FAMOTIDINE [Concomitant]
  6. CEFTRIAXONE [Concomitant]
  7. BATROXOBIN (BATROXOBIN) [Concomitant]
  8. BLOOD, CALF, DEPROT. LMW PORTION (BLOOD, CALF, DEPROT. LMW PORTION) [Concomitant]

REACTIONS (22)
  - ALANINE AMINOTRANSFERASE INCREASED [None]
  - ALCOHOLISM [None]
  - ASPARTATE AMINOTRANSFERASE INCREASED [None]
  - BACK PAIN [None]
  - BILIRUBIN CONJUGATED INCREASED [None]
  - BLOOD ALKALINE PHOSPHATASE INCREASED [None]
  - BLOOD CALCIUM DECREASED [None]
  - BLOOD LACTATE DEHYDROGENASE INCREASED [None]
  - BLOOD POTASSIUM DECREASED [None]
  - BLOOD TRIGLYCERIDES INCREASED [None]
  - BLOOD UREA INCREASED [None]
  - CEREBRAL INFARCTION [None]
  - GAMMA-GLUTAMYLTRANSFERASE INCREASED [None]
  - GASTRITIS HAEMORRHAGIC [None]
  - HEPATIC FUNCTION ABNORMAL [None]
  - HIGH DENSITY LIPOPROTEIN DECREASED [None]
  - LYMPHOCYTE STIMULATION TEST POSITIVE [None]
  - PLATELET COUNT DECREASED [None]
  - PNEUMONIA [None]
  - POLYURIA [None]
  - RHABDOMYOLYSIS [None]
  - THYMOL TURBIDITY TEST INCREASED [None]
